FAERS Safety Report 9009785 (Version 1)
Quarter: 2013Q1

REPORT INFORMATION
  Report Type: Spontaneous
  Country: US (occurrence: US)
  Receive Date: 20130110
  Receipt Date: 20130110
  Transmission Date: 20140127
  Serious: Yes (Death)
  Sender: FDA-Public Use
  Company Number: US-PFIZER INC-2013006356

PATIENT
  Age: 60 Year
  Sex: Female

DRUGS (7)
  1. AMLODIPINE BESILATE [Suspect]
     Dosage: UNK
  2. METOPROLOL [Suspect]
     Dosage: UNK
  3. UNSPECIFIED INGREDIENT [Suspect]
     Dosage: UNK
  4. METFORMIN [Suspect]
     Dosage: UNK
  5. HYDROCODONE [Suspect]
     Dosage: UNK
  6. SALICYLATE [Suspect]
     Dosage: UNK
  7. ACETAMINOPHEN [Suspect]
     Dosage: UNK

REACTIONS (3)
  - Completed suicide [Fatal]
  - Intentional drug misuse [None]
  - Toxicity to various agents [None]
